FAERS Safety Report 5483856-3 (Version None)
Quarter: 2007Q4

REPORT INFORMATION
  Report Type: 
  Country: None (occurrence: None)
  Receive Date: 20071010
  Receipt Date: 20071010
  Transmission Date: 20080405
  Serious: Yes (Disabling)
  Sender: FDA-Public Use
  Company Number: None

PATIENT
  Age: 46 Year
  Sex: Female
  Weight: 63.5036 kg

DRUGS (1)
  1. DOXYCYCLINE [Suspect]
     Indication: URINARY TRACT INFECTION
     Dosage: 100 MG 2 TIMES PO
     Route: 048
     Dates: start: 20071004, end: 20071008

REACTIONS (2)
  - HEADACHE [None]
  - MIDDLE INSOMNIA [None]
